FAERS Safety Report 5669566-8 (Version None)
Quarter: 2008Q1

REPORT INFORMATION
  Report Type: 
  Country: None (occurrence: None)
  Receive Date: 20080317
  Receipt Date: 20080303
  Transmission Date: 20080703
  Serious: Yes (Hospitalization)
  Sender: FDA-Public Use
  Company Number: BE-AMGEN-UK268815

PATIENT
  Sex: Male

DRUGS (8)
  1. KEPIVANCE [Suspect]
     Indication: MUCOSAL INFLAMMATION
     Route: 042
     Dates: start: 20080204, end: 20080211
  2. KEPIVANCE [Suspect]
     Route: 042
     Dates: start: 20080209, end: 20080211
  3. MELPHALAN [Concomitant]
     Route: 042
     Dates: start: 20080207, end: 20080207
  4. ZOVIRAX [Concomitant]
     Route: 042
  5. ZANTAC [Concomitant]
     Route: 042
     Dates: start: 20080204
  6. BURINEX [Concomitant]
     Route: 048
     Dates: start: 20070801
  7. CALCIUM CARBONATE [Concomitant]
     Route: 048
     Dates: start: 20070601
  8. SODIUM BICARBONATE [Concomitant]
     Route: 048
     Dates: start: 20070601

REACTIONS (1)
  - DIARRHOEA [None]
